FAERS Safety Report 8355143-7 (Version None)
Quarter: 2012Q2

REPORT INFORMATION
  Report Type: 
  Country: None (occurrence: None)
  Receive Date: 20120511
  Receipt Date: 20110707
  Transmission Date: 20120825
  Serious: No
  Sender: FDA-Public Use
  Company Number: US-TEVA-2011003622

PATIENT
  Sex: Female
  Weight: 54.48 kg

DRUGS (2)
  1. NUVIGIL [Suspect]
     Indication: CEREBROVASCULAR ACCIDENT
  2. NUVIGIL [Suspect]
     Indication: ASTHENIA
     Route: 048
     Dates: start: 20110624, end: 20110701

REACTIONS (3)
  - GLOSSODYNIA [None]
  - APHTHOUS STOMATITIS [None]
  - NAUSEA [None]
